FAERS Safety Report 24855757 (Version 1)
Quarter: 2025Q1

REPORT INFORMATION
  Report Type: Spontaneous
  Country: US (occurrence: None)
  Receive Date: 20250116
  Receipt Date: 20250116
  Transmission Date: 20250409
  Serious: Yes (Death)
  Sender: FDA-CTU
  Company Number: None

PATIENT
  Age: 72 Year
  Sex: Male

DRUGS (10)
  1. SYMTUZA [Suspect]
     Active Substance: COBICISTAT\DARUNAVIR\EMTRICITABINE\TENOFOVIR ALAFENAMIDE
     Indication: HIV infection
     Dosage: FREQUENCY : WEEKLY;?
     Route: 048
     Dates: start: 20200120
  2. ATIVAN 1MGTABLETS [Concomitant]
  3. RESTORIL 30MG CAPSULES [Concomitant]
  4. ATIVAN 1MGTABLETS [Concomitant]
  5. GABAPENTIN 1OOMG CAPSULES [Concomitant]
  6. OMEPRAZOLE [Concomitant]
     Active Substance: OMEPRAZOLE
  7. PREDNISOLONE AC. 1 % OPHTH SU#P SML [Concomitant]
  8. RESTORIL30MG CAPSULES [Concomitant]
  9. ARTIFICIAL TEARS 15ML [Concomitant]
  10. CHLORPROMAZINE 50MG TABLETS [Concomitant]

REACTIONS (1)
  - Death [None]

NARRATIVE: CASE EVENT DATE: 20250102
